FAERS Safety Report 24984916 (Version 2)
Quarter: 2025Q1

REPORT INFORMATION
  Report Type: Spontaneous
  Country: DE (occurrence: DE)
  Receive Date: 20250219
  Receipt Date: 20250303
  Transmission Date: 20250409
  Serious: Yes (Hospitalization)
  Sender: TEVA
  Company Number: DE-TEVA-VS-3299333

PATIENT
  Age: 66 Year
  Sex: Male

DRUGS (10)
  1. VINCRISTINE [Suspect]
     Active Substance: VINCRISTINE
     Indication: Angioimmunoblastic T-cell lymphoma stage III
     Route: 065
  2. APIXABAN [Concomitant]
     Active Substance: APIXABAN
     Indication: Atrial fibrillation
  3. BISOPROLOL [Concomitant]
     Active Substance: BISOPROLOL
     Indication: Product used for unknown indication
  4. PREDNISONE [Suspect]
     Active Substance: PREDNISONE
     Indication: Angioimmunoblastic T-cell lymphoma stage III
     Route: 065
  5. FOLIC ACID [Concomitant]
     Active Substance: FOLIC ACID
     Indication: Product used for unknown indication
  6. CYCLOPHOSPHAMIDE [Suspect]
     Active Substance: CYCLOPHOSPHAMIDE
     Indication: Angioimmunoblastic T-cell lymphoma stage III
     Route: 065
  7. PANTOPRAZOLE [Concomitant]
     Active Substance: PANTOPRAZOLE
     Indication: Product used for unknown indication
  8. TORSEMIDE [Concomitant]
     Active Substance: TORSEMIDE
     Indication: Product used for unknown indication
  9. DOXORUBICIN [Suspect]
     Active Substance: DOXORUBICIN
     Indication: Angioimmunoblastic T-cell lymphoma stage III
     Route: 065
  10. RAMIPRIL [Concomitant]
     Active Substance: RAMIPRIL
     Indication: Product used for unknown indication

REACTIONS (1)
  - Polyneuropathy [Recovering/Resolving]
